FAERS Safety Report 20429938 (Version 3)
Quarter: 2022Q3

REPORT INFORMATION
  Report Type: Spontaneous
  Country: BR (occurrence: BR)
  Receive Date: 20220204
  Receipt Date: 20220902
  Transmission Date: 20221026
  Serious: Yes (Other)
  Sender: FDA-Public Use
  Company Number: BR-PFIZER INC-202200103745

PATIENT
  Age: 26 Year
  Sex: Female
  Weight: 80 kg

DRUGS (1)
  1. MEDROXYPROGESTERONE [Suspect]
     Active Substance: MEDROXYPROGESTERONE
     Indication: Contraception
     Dosage: UNK
     Route: 058
     Dates: start: 2019, end: 2020

REACTIONS (8)
  - Scar [Not Recovered/Not Resolved]
  - Deformity [Unknown]
  - Impaired quality of life [Unknown]
  - Injury [Unknown]
  - Emotional distress [Unknown]
  - Injection site granuloma [Unknown]
  - Poor quality product administered [Unknown]
  - Manufacturing issue [Unknown]
